FAERS Safety Report 4560019-7 (Version None)
Quarter: 2005Q1

REPORT INFORMATION
  Report Type: 
  Country: None (occurrence: None)
  Receive Date: 20050124
  Receipt Date: 20050113
  Transmission Date: 20050727
  Serious: Yes (Other)
  Sender: FDA-Public Use
  Company Number: 2005012759

PATIENT
  Age: 39 Year
  Sex: Female
  Weight: 108.8633 kg

DRUGS (1)
  1. LUBRIDERM SKIN FIRMING (ALPHAHYDROXY ACID) [Suspect]
     Indication: DRY SKIN
     Dosage: ENOUGH TO COVER THE AREA 2X A DAY, TOPICAL
     Route: 061
     Dates: start: 20050101, end: 20050110

REACTIONS (6)
  - BLOOD PRESSURE INCREASED [None]
  - FEELING HOT [None]
  - PRURITUS [None]
  - SWELLING FACE [None]
  - THROAT TIGHTNESS [None]
  - URTICARIA [None]
